FAERS Safety Report 9168096 (Version 2)
Quarter: 2013Q2

REPORT INFORMATION
  Report Type: Spontaneous
  Country: PH (occurrence: None)
  Receive Date: 20130307
  Receipt Date: 20130417
  Transmission Date: 20140414
  Serious: Yes (Hospitalization)
  Sender: FDA-Public Use
  Company Number: VAL_01454_2013

PATIENT
  Age: 77 Year
  Sex: Male
  Weight: 60 kg

DRUGS (2)
  1. METOPROLOL (METOPROLOL-METOPROLOL TARTRATE) [Suspect]
     Indication: PRODUCT USED FOR UNKNOWN INDICATION
     Dates: end: 20130220
  2. ENALAPRIL [Suspect]
     Indication: CARDIAC FAILURE CHRONIC
     Dosage: DF [DOUBLE BLINDED
     Dates: start: 20101209

REACTIONS (3)
  - Atrioventricular block complete [None]
  - Dizziness [None]
  - Asthenia [None]
